FAERS Safety Report 5432146-3 (Version None)
Quarter: 2007Q3

REPORT INFORMATION
  Report Type: 
  Country: None (occurrence: None)
  Receive Date: 20070830
  Receipt Date: 20070822
  Transmission Date: 20080115
  Serious: Yes (Other)
  Sender: FDA-Public Use
  Company Number: ES-PFIZER INC-2007048377

PATIENT
  Sex: Female
  Weight: 68 kg

DRUGS (4)
  1. LYRICA [Suspect]
     Indication: NEURALGIA
     Route: 048
     Dates: start: 20070525, end: 20070620
  2. MULTIVITAMIN [Concomitant]
     Route: 048
     Dates: start: 20070525, end: 20070528
  3. FUCIDINE [Concomitant]
     Route: 048
     Dates: start: 20070525, end: 20070601
  4. DIANE [Concomitant]
     Route: 048

REACTIONS (3)
  - EYE PRURITUS [None]
  - EYELID OEDEMA [None]
  - HYPERSENSITIVITY [None]
